FAERS Safety Report 22103874 (Version 2)
Quarter: 2023Q1

REPORT INFORMATION
  Report Type: Report from Study
  Country: US (occurrence: US)
  Receive Date: 20230316
  Receipt Date: 20230331
  Transmission Date: 20230418
  Serious: Yes (Other)
  Sender: FDA-Public Use
  Company Number: US-BEH-2023156326

PATIENT
  Age: 38 Year
  Sex: Female

DRUGS (1)
  1. HUMAN IMMUNOGLOBULIN G [Suspect]
     Active Substance: HUMAN IMMUNOGLOBULIN G
     Indication: Post-acute COVID-19 syndrome
     Dosage: 0.4 G/KG EVERY 2 WEEKS
     Route: 042
     Dates: start: 20211117

REACTIONS (3)
  - Mycobacterium fortuitum infection [Recovered/Resolved]
  - No adverse event [Unknown]
  - Off label use [Unknown]
